FAERS Safety Report 4533800-8 (Version None)
Quarter: 2004Q4

REPORT INFORMATION
  Report Type: 
  Country: None (occurrence: None)
  Receive Date: 20041214
  Receipt Date: 20040816
  Transmission Date: 20050328
  Serious: No
  Sender: FDA-Public Use
  Company Number: US_0408104821

PATIENT
  Age: 49 Year
  Sex: Male
  Weight: 53.5244 kg

DRUGS (5)
  1. CIALIS [Suspect]
     Indication: ERECTILE DYSFUNCTION
     Dosage: 0.05 DSG FORM
     Dates: start: 20040801
  2. OXYCODONE HCL [Concomitant]
  3. SOMA [Concomitant]
  4. PREVACID [Concomitant]
  5. UNSPECIFIED ACID BLOCKER [Concomitant]

REACTIONS (3)
  - ARTHRITIS [None]
  - BACK PAIN [None]
  - MYALGIA [None]
